FAERS Safety Report 4355064-0 (Version None)
Quarter: 2004Q2

REPORT INFORMATION
  Report Type: 
  Country: None (occurrence: None)
  Receive Date: 20040504
  Receipt Date: 20040420
  Transmission Date: 20050107
  Serious: Yes (Hospitalization, Other)
  Sender: FDA-Public Use
  Company Number: 172536

PATIENT
  Age: 49 Year
  Sex: Female

DRUGS (1)
  1. AVONEX [Suspect]
     Indication: MULTIPLE SCLEROSIS
     Dates: start: 20020713, end: 20021226

REACTIONS (4)
  - BLOOD POTASSIUM DECREASED [None]
  - CARDIAC ARREST [None]
  - CARDIOMYOPATHY [None]
  - MYOCARDIAL INFARCTION [None]
